FAERS Safety Report 10835171 (Version 10)
Quarter: 2017Q1

REPORT INFORMATION
  Report Type: Spontaneous
  Country: US (occurrence: US)
  Receive Date: 20150219
  Receipt Date: 20170330
  Transmission Date: 20170428
  Serious: Yes (Hospitalization)
  Sender: FDA-Public Use
  Company Number: US-ACTELION-A-NJ2015-113229

PATIENT
  Age: 88 Year
  Sex: Female
  Weight: 47.62 kg

DRUGS (10)
  1. METOPROLOL TARTRATE. [Suspect]
     Active Substance: METOPROLOL TARTRATE
     Indication: PRODUCT USED FOR UNKNOWN INDICATION
     Dosage: 25 MG, BID
     Route: 048
  2. FUROSEMIDE. [Concomitant]
     Active Substance: FUROSEMIDE
     Dosage: 20 MG, QD
     Route: 048
  3. VENTAVIS [Suspect]
     Active Substance: ILOPROST
     Indication: PULMONARY ARTERIAL HYPERTENSION
     Dosage: 5 MCG, 5-9X/DAY
     Route: 055
     Dates: start: 20070928
  4. VESICARE [Concomitant]
     Active Substance: SOLIFENACIN SUCCINATE
     Dosage: 10 MG, QD
     Route: 048
  5. VENTAVIS [Suspect]
     Active Substance: ILOPROST
     Dosage: 5 MCG, 6-9X DAILY
     Route: 055
  6. REVATIO [Suspect]
     Active Substance: SILDENAFIL CITRATE
     Indication: PULMONARY HYPERTENSION
     Dosage: 20 MG, TID
     Route: 048
     Dates: start: 2007
  7. VENTAVIS [Suspect]
     Active Substance: ILOPROST
     Dosage: 1 INHALATION, 3-4X A DAY
     Route: 055
  8. TRACLEER [Suspect]
     Active Substance: BOSENTAN
     Indication: PULMONARY ARTERIAL HYPERTENSION
     Dosage: 125 MG, BID
     Route: 048
     Dates: start: 2007
  9. VENTAVIS [Suspect]
     Active Substance: ILOPROST
     Dosage: 5 MCG, 3X/DAY
     Route: 055
  10. TRACLEER [Suspect]
     Active Substance: BOSENTAN
     Dosage: 125 MG, QD
     Route: 048

REACTIONS (20)
  - Left ventricular failure [Recovering/Resolving]
  - Seasonal allergy [Unknown]
  - Non-cardiac chest pain [Unknown]
  - Heart rate increased [Recovering/Resolving]
  - Hypertension [Unknown]
  - Right ventricular failure [Unknown]
  - Dyspnoea [Recovered/Resolved]
  - Blood iron decreased [Unknown]
  - Feeling abnormal [Unknown]
  - Anaemia [Unknown]
  - Drug dose omission [Unknown]
  - Treatment noncompliance [Unknown]
  - Cardiac pacemaker replacement [Unknown]
  - Fall [Recovered/Resolved]
  - Laceration [Unknown]
  - Eye pruritus [Unknown]
  - Memory impairment [Not Recovered/Not Resolved]
  - Ejection fraction decreased [Recovering/Resolving]
  - Pollakiuria [Not Recovered/Not Resolved]
  - Hypotension [Not Recovered/Not Resolved]

NARRATIVE: CASE EVENT DATE: 20150205
